FAERS Safety Report 8382824-1 (Version None)
Quarter: 2012Q2

REPORT INFORMATION
  Report Type: 
  Country: None (occurrence: None)
  Receive Date: 20120524
  Receipt Date: 20120510
  Transmission Date: 20120825
  Serious: Yes (Hospitalization)
  Sender: FDA-Public Use
  Company Number: AU-JNJFOC-20111200931

PATIENT
  Sex: Male
  Weight: 86 kg

DRUGS (9)
  1. PANTOPRAZOLE [Concomitant]
     Indication: PROPHYLAXIS
     Route: 065
     Dates: start: 20100101
  2. ABIRATERONE ACETATE [Suspect]
     Indication: PROSTATE CANCER METASTATIC
     Route: 048
     Dates: start: 20111118, end: 20111119
  3. VENLAFAXINE [Concomitant]
     Indication: DEPRESSION
     Route: 065
     Dates: start: 20110816
  4. PREDNISOLONE [Suspect]
     Indication: PROSTATE CANCER METASTATIC
     Route: 048
     Dates: start: 20111118
  5. ACETAMINOPHEN [Concomitant]
     Indication: PAIN
     Route: 065
     Dates: start: 20090101
  6. ABIRATERONE ACETATE [Suspect]
     Route: 048
  7. OXYCONTIN [Concomitant]
     Indication: PAIN MANAGEMENT
     Route: 065
     Dates: start: 20100101
  8. MULTI-VITAMINS [Concomitant]
     Indication: MEDICAL DIET
     Route: 065
     Dates: start: 20110101
  9. OXYCODONE HCL [Concomitant]
     Indication: PAIN MANAGEMENT
     Route: 065
     Dates: start: 20100101

REACTIONS (6)
  - BONE PAIN [None]
  - TUMOUR FLARE [None]
  - BLOOD PHOSPHORUS DECREASED [None]
  - HAEMOGLOBIN DECREASED [None]
  - BLOOD POTASSIUM DECREASED [None]
  - ATELECTASIS [None]
